FAERS Safety Report 20939162 (Version 1)
Quarter: 2022Q2

REPORT INFORMATION
  Report Type: Spontaneous
  Country: GB (occurrence: GB)
  Receive Date: 20220609
  Receipt Date: 20220609
  Transmission Date: 20220721
  Serious: Yes (Life-Threatening, Other)
  Sender: FDA-Public Use
  Company Number: GB-MHRA-MED-202206061439088950-TCKVR

PATIENT
  Age: 44 Year
  Sex: Male
  Weight: 120 kg

DRUGS (3)
  1. KETAMINE HYDROCHLORIDE [Suspect]
     Active Substance: KETAMINE HYDROCHLORIDE
     Indication: Sedative therapy
     Dosage: 60 MG BOLUS
     Dates: start: 20220404, end: 20220404
  2. MORPHINE [Concomitant]
     Active Substance: MORPHINE
     Dosage: UNK
     Route: 042
  3. ONDANSETRON [Concomitant]
     Active Substance: ONDANSETRON
     Dosage: UNK
     Route: 042

REACTIONS (3)
  - Apnoea [Recovered/Resolved]
  - Oxygen saturation decreased [Recovering/Resolving]
  - Nystagmus [Unknown]

NARRATIVE: CASE EVENT DATE: 20220101
